FAERS Safety Report 8785847 (Version 1)
Quarter: 2012Q4

REPORT INFORMATION
  Report Type: 
  Country: US (occurrence: US)
  Receive Date: 20120914
  Receipt Date: 20120914
  Transmission Date: 20130627
  Serious: Yes (Hospitalization)
  Sender: FDA-Public Use
  Company Number: US-B.I. PHARMACEUTICALS,INC./RIDGEFIELD-2012-BP-22307PF

PATIENT
  Sex: Female
  Weight: 78.02 kg

DRUGS (10)
  1. SPIRIVA [Suspect]
     Indication: CHRONIC OBSTRUCTIVE PULMONARY DISEASE
  2. GABAPENTIN [Suspect]
     Indication: SYNOVIAL CYST
     Dates: start: 2012
  3. GABAPENTIN [Suspect]
     Dates: start: 2012
  4. GABAPENTIN [Suspect]
  5. SINGULAIR [Suspect]
     Indication: CHRONIC OBSTRUCTIVE PULMONARY DISEASE
  6. ADVAIR [Suspect]
     Indication: CHRONIC OBSTRUCTIVE PULMONARY DISEASE
  7. LANSOPRAZOLE [Concomitant]
     Indication: GASTROOESOPHAGEAL REFLUX DISEASE
  8. NAPROXEN [Concomitant]
     Indication: OSTEOPOROSIS
     Dosage: 500 mg
  9. ALBUTEROL [Concomitant]
  10. PULMICORT [Concomitant]

REACTIONS (2)
  - Asthma [Unknown]
  - Herpes zoster [Not Recovered/Not Resolved]
